FAERS Safety Report 24090965 (Version 1)
Quarter: 2024Q3

REPORT INFORMATION
  Report Type: Spontaneous
  Country: US (occurrence: None)
  Receive Date: 20240712
  Receipt Date: 20240712
  Transmission Date: 20241017
  Serious: Yes (Death)
  Sender: Public
  Company Number: None

PATIENT
  Age: 56 Year
  Sex: Female

DRUGS (18)
  1. MYCOPHENOLIC ACID [Suspect]
     Active Substance: MYCOPHENOLIC ACID
     Indication: Prophylaxis against transplant rejection
     Dosage: 750 MG BID ORAL
     Route: 048
     Dates: start: 20220323
  2. TACROLIMUS [Suspect]
     Active Substance: TACROLIMUS
     Indication: Prophylaxis against transplant rejection
     Dosage: 1 MG BID ORAL?
     Route: 048
     Dates: start: 20231017
  3. LOKELMA [Concomitant]
     Active Substance: SODIUM ZIRCONIUM CYCLOSILICATE
  4. Aspirin [Concomitant]
  5. ATORVASTATIN [Concomitant]
  6. BASAGLAR KWIKPEN [Concomitant]
     Active Substance: INSULIN GLARGINE
  7. CARVEDILOL [Concomitant]
     Active Substance: CARVEDILOL
  8. CINACALCET [Concomitant]
     Active Substance: CINACALCET
  9. EPOGEN [Concomitant]
     Active Substance: ERYTHROPOIETIN
  10. EZETIMIBE [Concomitant]
     Active Substance: EZETIMIBE
  11. FOLIC ACID [Concomitant]
     Active Substance: FOLIC ACID
  12. HYDRALAZINE [Concomitant]
  13. INSULIN ASPART [Concomitant]
     Active Substance: INSULIN ASPART
  14. MAGNESIUM OXIDE [Concomitant]
     Active Substance: MAGNESIUM OXIDE
  15. PANTOPRAZOLE [Concomitant]
     Active Substance: PANTOPRAZOLE
  16. PREDNISONE [Concomitant]
  17. SODIUM BICARBONATE [Concomitant]
     Active Substance: SODIUM BICARBONATE
  18. VITAMIN D3 [Concomitant]
     Active Substance: CHOLECALCIFEROL

REACTIONS (1)
  - Death [None]

NARRATIVE: CASE EVENT DATE: 20240710
